FAERS Safety Report 19139417 (Version 1)
Quarter: 2021Q2

REPORT INFORMATION
  Report Type: Spontaneous
  Country: US (occurrence: US)
  Receive Date: 20210415
  Receipt Date: 20210415
  Transmission Date: 20210717
  Serious: Yes (Other)
  Sender: FDA-Public Use
  Company Number: US-GLAXOSMITHKLINE-US2021GSK082595

PATIENT
  Sex: Female

DRUGS (14)
  1. ZANTAC [Suspect]
     Active Substance: RANITIDINE HYDROCHLORIDE
     Indication: CHEST PAIN
     Dosage: 25 MG, QD
     Route: 065
     Dates: start: 201301, end: 201906
  2. RANITIDINE CAPSULE [Suspect]
     Active Substance: RANITIDINE
     Indication: CHEST PAIN
     Dosage: 25 MG, QD
     Route: 065
     Dates: start: 201301, end: 201906
  3. RANITIDINE. [Suspect]
     Active Substance: RANITIDINE
     Dosage: 75 MG, QD
     Route: 065
     Dates: start: 201301, end: 201906
  4. ZANTAC [Suspect]
     Active Substance: RANITIDINE HYDROCHLORIDE
     Dosage: 75 MG, QD
     Route: 065
     Dates: start: 201301, end: 201906
  5. ZANTAC [Suspect]
     Active Substance: RANITIDINE HYDROCHLORIDE
     Dosage: 75 MG, QD
     Route: 065
     Dates: start: 201301, end: 201906
  6. RANITIDINE. [Suspect]
     Active Substance: RANITIDINE
     Dosage: 75 MG, QD
     Route: 065
     Dates: start: 201301, end: 201906
  7. RANITIDINE CAPSULE [Suspect]
     Active Substance: RANITIDINE
     Dosage: 75 MG, QD
     Route: 065
     Dates: start: 201301, end: 201906
  8. RANITIDINE. [Suspect]
     Active Substance: RANITIDINE
     Indication: CHEST PAIN
     Dosage: 25 MG, QD
     Route: 065
     Dates: start: 201301, end: 201906
  9. ZANTAC [Suspect]
     Active Substance: RANITIDINE HYDROCHLORIDE
     Dosage: 75 MG, QD
     Route: 065
     Dates: start: 201301, end: 201906
  10. ZANTAC [Suspect]
     Active Substance: RANITIDINE HYDROCHLORIDE
     Indication: CHEST PAIN
     Dosage: 25 MG, QD
     Route: 065
     Dates: start: 201301, end: 201906
  11. ZANTAC [Suspect]
     Active Substance: RANITIDINE HYDROCHLORIDE
     Indication: CHEST PAIN
     Dosage: 25 MG,  QD
     Route: 065
     Dates: start: 201301, end: 201906
  12. RANITIDINE. [Suspect]
     Active Substance: RANITIDINE
     Indication: CHEST PAIN
     Dosage: 25 MG, QD
     Route: 065
     Dates: start: 201301, end: 201906
  13. RANITIDINE. [Suspect]
     Active Substance: RANITIDINE
     Dosage: 75 MG BOTH
     Route: 065
     Dates: start: 201301, end: 201906
  14. RANITIDINE. [Suspect]
     Active Substance: RANITIDINE
     Indication: CHEST PAIN
     Dosage: 25 MG, QD
     Route: 065
     Dates: start: 201301, end: 201906

REACTIONS (1)
  - Breast cancer [Unknown]
